FAERS Safety Report 23148035 (Version 1)
Quarter: 2023Q4

REPORT INFORMATION
  Report Type: Other
  Country: FR (occurrence: FR)
  Receive Date: 20231106
  Receipt Date: 20231106
  Transmission Date: 20240110
  Serious: Yes (Death)
  Sender: FDA-Public Use
  Company Number: FR-Bion-012289

PATIENT
  Age: 15 Year
  Sex: Male

DRUGS (3)
  1. DEXAMETHASONE [Suspect]
     Active Substance: DEXAMETHASONE
     Indication: Lymphoproliferative disorder
  2. CYTARABINE [Concomitant]
     Active Substance: CYTARABINE
     Indication: Lymphoproliferative disorder
  3. CARBOPLATIN [Concomitant]
     Active Substance: CARBOPLATIN
     Indication: Lymphoproliferative disorder

REACTIONS (1)
  - Drug ineffective [Fatal]
